FAERS Safety Report 5211795-1 (Version None)
Quarter: 2007Q1

REPORT INFORMATION
  Report Type: 
  Country: None (occurrence: None)
  Receive Date: 20070116
  Receipt Date: 20070103
  Transmission Date: 20070707
  Serious: Yes (Death, Hospitalization)
  Sender: FDA-Public Use
  Company Number: A-CH2007-13939

PATIENT
  Age: 63 Year
  Sex: Male

DRUGS (18)
  1. TRACLEER [Suspect]
     Indication: PULMONARY HYPERTENSION
     Dosage: 125 MG, BID, ORAL
     Route: 048
     Dates: start: 20040501
  2. LOZAAR (LOSARTAN POTASSIUM) [Concomitant]
  3. IODID (IODINE) [Concomitant]
  4. SEREVENT [Concomitant]
  5. PANTOZOL (PANTOPRAZOLE SODIUM) [Concomitant]
  6. DIMETICONE [Concomitant]
  7. DECORTIN (PREDNISONE) [Concomitant]
  8. NAC (ACETYLCYSTEINE) [Concomitant]
  9. DURAGESIC-100 [Concomitant]
  10. AERODUR (TERBUTALINE SULFATE) [Concomitant]
  11. FUROSEMIDE (FUROSEMIDE SODIUM) [Concomitant]
  12. MARCUMAR [Concomitant]
  13. SILDENAFIL CITRATE [Concomitant]
  14. XIPAMIDE [Concomitant]
  15. KALINOR (POTASSIUM BICARBONATE, POTASSIUM CITRATE) [Concomitant]
  16. MORPHINE SULFATE [Concomitant]
  17. OXYGEN [Concomitant]
  18. XIPAMIDE [Concomitant]

REACTIONS (4)
  - BRONCHITIS [None]
  - CARDIAC FAILURE [None]
  - CARDIOVASCULAR DISORDER [None]
  - RESPIRATORY FAILURE [None]
